FAERS Safety Report 5648732-1 (Version None)
Quarter: 2008Q1

REPORT INFORMATION
  Report Type: 
  Country: None (occurrence: None)
  Receive Date: 20080304
  Receipt Date: 20080229
  Transmission Date: 20080703
  Serious: No
  Sender: FDA-Public Use
  Company Number: JP-ELI_LILLY_AND_COMPANY-JP200710005036

PATIENT
  Sex: Female
  Weight: 41 kg

DRUGS (4)
  1. RALOXIFENE HYDROCHLORIDE [Suspect]
     Indication: OSTEOPOROSIS POSTMENOPAUSAL
     Dosage: 60 MG, DAILY (1/D)
     Route: 048
     Dates: start: 20050119, end: 20060114
  2. TAKEPRON [Concomitant]
     Indication: GASTRIC ULCER
     Dosage: 15 MG, DAILY (1/D)
     Route: 048
     Dates: start: 20041222
  3. DIART [Concomitant]
     Indication: OEDEMA DUE TO CARDIAC DISEASE
     Dosage: 120 MG, DAILY (1/D)
     Route: 048
     Dates: start: 20041222, end: 20060114
  4. OPALMON [Concomitant]
     Indication: LUMBAR SPINAL STENOSIS
     Dosage: 15 UG, DAILY (1/D)
     Route: 048
     Dates: start: 20041222

REACTIONS (1)
  - NO ADVERSE EVENT [None]
